FAERS Safety Report 5246660-7 (Version None)
Quarter: 2007Q1

REPORT INFORMATION
  Report Type: 
  Country: None (occurrence: None)
  Receive Date: 20070216
  Receipt Date: 20070201
  Transmission Date: 20070707
  Serious: Yes (Disabling)
  Sender: FDA-Public Use
  Company Number: TAP2007Q00099

PATIENT
  Age: 10 Year
  Sex: Female
  Weight: 52.2 kg

DRUGS (5)
  1. LUPRON DEPOT-3 [Suspect]
     Indication: PRECOCIOUS PUBERTY
     Dosage: 11.25 MG, 1 IN 1 M, INTRAMUSCULAR
     Route: 030
     Dates: start: 20060401, end: 20061201
  2. PREVACID [Concomitant]
  3. ZYRTEC [Concomitant]
  4. STRATTERA [Concomitant]
  5. KLONOPIN [Concomitant]

REACTIONS (5)
  - ASTHENIA [None]
  - GAIT DISTURBANCE [None]
  - PAIN [None]
  - PARAESTHESIA [None]
  - WEIGHT INCREASED [None]
